FAERS Safety Report 7481983-2 (Version None)
Quarter: 2011Q2

REPORT INFORMATION
  Report Type: 
  Country: None (occurrence: None)
  Receive Date: 20110516
  Receipt Date: 20110506
  Transmission Date: 20111010
  Serious: Yes (Other)
  Sender: FDA-Public Use
  Company Number: FR-ASTRAZENECA-2011SE27677

PATIENT
  Age: 32152 Day
  Sex: Female

DRUGS (7)
  1. DITROPAN [Suspect]
     Route: 048
     Dates: end: 20101126
  2. ATACAND [Concomitant]
     Route: 048
  3. LORAZEPAM [Concomitant]
     Route: 048
  4. NEXIUM [Suspect]
     Route: 048
     Dates: end: 20101126
  5. ASPIRIN [Concomitant]
     Route: 048
  6. ACETAMINOPHEN [Concomitant]
     Route: 048
  7. PRAXILENE [Concomitant]
     Route: 048
     Dates: end: 20101126

REACTIONS (2)
  - DISORIENTATION [None]
  - HYPONATRAEMIA [None]
